FAERS Safety Report 5292045-7 (Version None)
Quarter: 2007Q2

REPORT INFORMATION
  Report Type: 
  Country: None (occurrence: None)
  Receive Date: 20070406
  Receipt Date: 20070406
  Transmission Date: 20071010
  Serious: Yes (Other)
  Sender: FDA-Public Use
  Company Number: None

PATIENT
  Age: 48 Year
  Sex: Female
  Weight: 52.1637 kg

DRUGS (1)
  1. BACTRIM DS [Suspect]
     Indication: STAPHYLOCOCCAL SKIN INFECTION
     Dosage: DS 2 PER DAY PO
     Route: 048
     Dates: start: 20070404, end: 20070404

REACTIONS (12)
  - ASTHENIA [None]
  - DISCOMFORT [None]
  - FATIGUE [None]
  - FEELING ABNORMAL [None]
  - IMPAIRED DRIVING ABILITY [None]
  - INSOMNIA [None]
  - MUSCULAR WEAKNESS [None]
  - NAUSEA [None]
  - PAIN [None]
  - RESTLESS LEGS SYNDROME [None]
  - RESTLESSNESS [None]
  - SKIN WARM [None]
